FAERS Safety Report 6105131-6 (Version None)
Quarter: 2009Q1

REPORT INFORMATION
  Report Type: 
  Country: None (occurrence: None)
  Receive Date: 20090306
  Receipt Date: 20090226
  Transmission Date: 20090719
  Serious: Yes (Other)
  Sender: FDA-Public Use
  Company Number: US-BRISTOL-MYERS SQUIBB COMPANY-14528400

PATIENT
  Age: 16 Year
  Sex: Male

DRUGS (1)
  1. ABILIFY [Suspect]
     Indication: BIPOLAR DISORDER
     Dosage: STOPPED FOR 1 AND HALF MONTHS AND RESTARTED ON 22JAN09
     Dates: start: 20050101

REACTIONS (3)
  - DYSPHAGIA [None]
  - EYE DISORDER [None]
  - PNEUMONIA [None]
